FAERS Safety Report 24641811 (Version 2)
Quarter: 2024Q4

REPORT INFORMATION
  Report Type: Report from Study
  Country: US (occurrence: US)
  Receive Date: 20241120
  Receipt Date: 20241207
  Transmission Date: 20250115
  Serious: Yes (Hospitalization, Other)
  Sender: ABBVIE
  Company Number: US-ABBVIE-6007897

PATIENT
  Age: 83 Year
  Sex: Female
  Weight: 79.378 kg

DRUGS (2)
  1. SKYRIZI [Suspect]
     Active Substance: RISANKIZUMAB-RZAA
     Indication: Crohn^s disease
     Route: 058
  2. SKYRIZI [Suspect]
     Active Substance: RISANKIZUMAB-RZAA
     Dosage: FREQUENCY TIME: 56
     Route: 058
     Dates: start: 2020

REACTIONS (4)
  - Nephrolithiasis [Recovered/Resolved]
  - Kidney infection [Unknown]
  - Renal artery stent placement [Recovered/Resolved]
  - Device related infection [Recovered/Resolved]

NARRATIVE: CASE EVENT DATE: 20241005
